FAERS Safety Report 10373440 (Version 1)
Quarter: 2014Q3

REPORT INFORMATION
  Report Type: Spontaneous
  Country: US (occurrence: US)
  Receive Date: 20140808
  Receipt Date: 20140808
  Transmission Date: 20150326
  Serious: No
  Sender: FDA-Public Use
  Company Number: US-BRISTOL-MYERS SQUIBB COMPANY-20620514

PATIENT
  Age: 51 Year
  Sex: Male
  Weight: 76.64 kg

DRUGS (5)
  1. SPRYCEL [Suspect]
     Active Substance: DASATINIB
     Dosage: ONE TABLET
     Route: 048
     Dates: start: 20140313
  2. VISTARIL [Concomitant]
     Active Substance: HYDROXYZINE PAMOATE
  3. CELEBREX [Concomitant]
     Active Substance: CELECOXIB
  4. ATIVAN [Concomitant]
     Active Substance: LORAZEPAM
  5. NORCO [Concomitant]
     Active Substance: ACETAMINOPHEN\HYDROCODONE BITARTRATE

REACTIONS (3)
  - Impaired healing [Unknown]
  - Skin disorder [Unknown]
  - Rash [Unknown]
